FAERS Safety Report 16429179 (Version 4)
Quarter: 2019Q3

REPORT INFORMATION
  Report Type: Report from Study
  Country: None (occurrence: US)
  Receive Date: 20190614
  Receipt Date: 20190924
  Transmission Date: 20191004
  Serious: Yes (Hospitalization)
  Sender: FDA-Public Use
  Company Number: US-ABBVIE-19K-163-2816876-00

PATIENT
  Sex: Female

DRUGS (3)
  1. HUMIRA [Suspect]
     Active Substance: ADALIMUMAB
     Indication: PSORIASIS
     Route: 058
     Dates: start: 20190415, end: 2019
  2. HUMIRA [Suspect]
     Active Substance: ADALIMUMAB
     Dosage: MAINTENANCE DOSE DAY 8
     Route: 058
     Dates: start: 20190415, end: 2019
  3. HUMIRA [Suspect]
     Active Substance: ADALIMUMAB
     Dosage: DAY 1
     Route: 058
     Dates: start: 20190415, end: 2019

REACTIONS (12)
  - Acute kidney injury [Recovered/Resolved]
  - Blood count abnormal [Not Recovered/Not Resolved]
  - Diverticulitis [Unknown]
  - Fall [Unknown]
  - Psoriasis [Unknown]
  - Anaemia [Recovering/Resolving]
  - Arrhythmia [Unknown]
  - Foot fracture [Not Recovered/Not Resolved]
  - Colitis [Recovering/Resolving]
  - White blood cell count decreased [Not Recovered/Not Resolved]
  - Contrast media allergy [Unknown]
  - Impaired healing [Unknown]

NARRATIVE: CASE EVENT DATE: 2019
